FAERS Safety Report 15569741 (Version 7)
Quarter: 2024Q2

REPORT INFORMATION
  Report Type: Spontaneous
  Country: US (occurrence: US)
  Receive Date: 20181031
  Receipt Date: 20240506
  Transmission Date: 20240716
  Serious: Yes (Other)
  Sender: FDA-Public Use
  Company Number: US-PFIZER INC-2018433912

PATIENT
  Age: 53 Year
  Sex: Female

DRUGS (3)
  1. SOMATROPIN [Suspect]
     Active Substance: SOMATROPIN
     Indication: Growth hormone deficiency
     Dosage: 1.2 MG/DAY, DAILY
     Dates: start: 20090617
  2. SOMATROPIN [Suspect]
     Active Substance: SOMATROPIN
     Indication: Hypopituitarism
  3. SOMATROPIN [Suspect]
     Active Substance: SOMATROPIN
     Indication: Hypopituitarism

REACTIONS (9)
  - Nerve injury [Unknown]
  - Product dispensing error [Unknown]
  - Product dose omission issue [Unknown]
  - Fatigue [Not Recovered/Not Resolved]
  - Tri-iodothyronine decreased [Unknown]
  - Blood growth hormone decreased [Unknown]
  - Illness [Unknown]
  - Back pain [Unknown]
  - Brain fog [Not Recovered/Not Resolved]
